FAERS Safety Report 9379085 (Version 1)
Quarter: 2013Q3

REPORT INFORMATION
  Report Type: Spontaneous
  Country: GB (occurrence: GB)
  Receive Date: 20130702
  Receipt Date: 20130702
  Transmission Date: 20140515
  Serious: Yes (Other)
  Sender: FDA-Public Use
  Company Number: PHFR2013GB003409

PATIENT
  Sex: Male

DRUGS (2)
  1. CLOZARIL [Suspect]
     Indication: SCHIZOPHRENIA
     Dosage: 350 MG, (150/200 MG)
     Route: 048
     Dates: start: 20030708
  2. CLOZARIL [Suspect]
     Dosage: 500 MG, QD

REACTIONS (1)
  - Medication error [Recovered/Resolved]
